FAERS Safety Report 14784228 (Version 2)
Quarter: 2018Q2

REPORT INFORMATION
  Report Type: Spontaneous
  Country: FR (occurrence: FR)
  Receive Date: 20180420
  Receipt Date: 20180423
  Transmission Date: 20180711
  Serious: Yes (Hospitalization, Other)
  Sender: FDA-Public Use
  Company Number: FR-MYLANLABS-2018M1024699

PATIENT
  Age: 29 Year
  Sex: Female

DRUGS (4)
  1. ESTRADIOL. [Suspect]
     Active Substance: ESTRADIOL
     Indication: PRODUCT USED FOR UNKNOWN INDICATION
     Dosage: 1 DF, QD
     Dates: start: 2012, end: 201711
  2. DI-ANTALVIC [Suspect]
     Active Substance: ACETAMINOPHEN\PROPOXYPHENE HYDROCHLORIDE
     Indication: ILL-DEFINED DISORDER
     Dosage: 2 DF, QD
     Route: 048
  3. ANDROCUR [Suspect]
     Active Substance: CYPROTERONE ACETATE
     Dosage: 50 MG, QD
     Route: 048
     Dates: start: 2012, end: 201711
  4. ANDROCUR [Suspect]
     Active Substance: CYPROTERONE ACETATE
     Indication: VIRILISM
     Dosage: 50 MG, QD
     Route: 048
     Dates: start: 20040615

REACTIONS (7)
  - Frontotemporal dementia [Unknown]
  - Meningioma [Unknown]
  - Mood swings [Unknown]
  - Amnesia [Unknown]
  - Aphasia [Unknown]
  - Headache [Unknown]
  - Irritability [Unknown]

NARRATIVE: CASE EVENT DATE: 20171122
